FAERS Safety Report 8395854-0 (Version None)
Quarter: 2012Q2

REPORT INFORMATION
  Report Type: 
  Country: None (occurrence: None)
  Receive Date: 20120529
  Receipt Date: 20120529
  Transmission Date: 20120825
  Serious: Yes (Other)
  Sender: FDA-Public Use
  Company Number: None

PATIENT
  Age: 74 Year
  Sex: Male
  Weight: 92.7606 kg

DRUGS (2)
  1. PRADAXA [Suspect]
     Indication: ATRIAL FIBRILLATION
     Dosage: 150 B.I.D. PO
     Route: 048
     Dates: start: 20120208, end: 20120521
  2. WARFARIN SODIUM [Concomitant]

REACTIONS (2)
  - HAEMATURIA [None]
  - NEUROGENIC BLADDER [None]
